FAERS Safety Report 23789368 (Version 2)
Quarter: 2024Q2

REPORT INFORMATION
  Report Type: Spontaneous
  Country: PR (occurrence: PR)
  Receive Date: 20240426
  Receipt Date: 20240515
  Transmission Date: 20240716
  Serious: Yes (Other)
  Sender: FDA-Public Use
  Company Number: PR-PFIZER INC-202400093926

PATIENT
  Age: 67 Year
  Sex: Female

DRUGS (2)
  1. XELJANZ XR [Suspect]
     Active Substance: TOFACITINIB CITRATE
     Dosage: 11 MG, DAILY
     Route: 048
     Dates: start: 20211221
  2. PROLIA [Concomitant]
     Active Substance: DENOSUMAB
     Dosage: UNK

REACTIONS (4)
  - Thoracic vertebral fracture [Recovering/Resolving]
  - Mycoplasma infection [Unknown]
  - Bronchitis [Unknown]
  - Product dose omission issue [Unknown]

NARRATIVE: CASE EVENT DATE: 20230901
